FAERS Safety Report 25950922 (Version 2)
Quarter: 2025Q4

REPORT INFORMATION
  Report Type: Spontaneous
  Country: US (occurrence: US)
  Receive Date: 20251023
  Receipt Date: 20251205
  Transmission Date: 20260117
  Serious: Yes (Other)
  Sender: SPECGX
  Company Number: US-SPECGX-T202501723

PATIENT
  Age: 20 Year
  Sex: Male
  Weight: 91 kg

DRUGS (2)
  1. ACETAMINOPHEN\HYDROCODONE [Suspect]
     Active Substance: ACETAMINOPHEN\HYDROCODONE
     Indication: Procedural pain
     Dosage: 5/325 MG (ONE TABLET)
     Route: 065
  2. IBUPROFEN [Suspect]
     Active Substance: IBUPROFEN
     Indication: Procedural pain
     Dosage: 600 MILLIGRAM
     Route: 065

REACTIONS (3)
  - Apnoeic attack [Recovering/Resolving]
  - Delirium [Recovering/Resolving]
  - Pain [Unknown]
